FAERS Safety Report 13475049 (Version 3)
Quarter: 2018Q1

REPORT INFORMATION
  Report Type: Report from Study
  Country: US (occurrence: US)
  Receive Date: 20170424
  Receipt Date: 20180117
  Transmission Date: 20180508
  Serious: No
  Sender: FDA-Public Use
  Company Number: US-AMGEN-USASL2017056612

PATIENT
  Age: 68 Year
  Sex: Female

DRUGS (1)
  1. REPATHA [Suspect]
     Active Substance: EVOLOCUMAB
     Indication: BLOOD CHOLESTEROL INCREASED
     Dosage: 140 MG, Q2WK
     Route: 065
     Dates: start: 2016

REACTIONS (8)
  - Headache [Unknown]
  - Therapeutic response unexpected [Unknown]
  - Malaise [Unknown]
  - Palpitations [Unknown]
  - Adverse event [Unknown]
  - Drug dose omission [Unknown]
  - Fatigue [Unknown]
  - Unevaluable event [Unknown]
